FAERS Safety Report 9118213 (Version 1)
Quarter: 2013Q1

REPORT INFORMATION
  Report Type: Report from Study
  Country: US (occurrence: US)
  Receive Date: 20130129
  Receipt Date: 20130129
  Transmission Date: 20140127
  Serious: No
  Sender: FDA-Public Use
  Company Number: US-ABBOTT-12P-163-0942125-00

PATIENT
  Age: 79 Year
  Sex: Male

DRUGS (8)
  1. HUMIRA 40 MG/0.8 ML PEN [Suspect]
     Indication: COLITIS ULCERATIVE
     Dosage: LOADING DOSE
     Route: 058
     Dates: start: 20120519, end: 20120519
  2. HUMIRA 40 MG/0.8 ML PEN [Suspect]
     Route: 058
  3. LOVAZA [Concomitant]
     Indication: BLOOD CHOLESTEROL
     Dosage: 1GM DAILY
     Route: 048
  4. TRICOR [Concomitant]
     Indication: BLOOD CHOLESTEROL
     Dosage: 145MG DAILY
     Route: 048
  5. DIGOXIN [Concomitant]
     Indication: ATRIAL FIBRILLATION
     Dosage: 0.25MG DAILY
     Route: 048
  6. TOPROL ER [Concomitant]
     Indication: ATRIAL FIBRILLATION
     Dosage: 100MG DAILY
     Route: 048
  7. LIALDA [Concomitant]
     Indication: COLITIS ULCERATIVE
  8. 6-MP [Concomitant]
     Indication: COLITIS ULCERATIVE

REACTIONS (2)
  - Diarrhoea [Not Recovered/Not Resolved]
  - Injection site erythema [Not Recovered/Not Resolved]
